FAERS Safety Report 6960810-3 (Version None)
Quarter: 2010Q3

REPORT INFORMATION
  Report Type: 
  Country: None (occurrence: None)
  Receive Date: 20100901
  Receipt Date: 20100818
  Transmission Date: 20110219
  Serious: Yes (Hospitalization, Other)
  Sender: FDA-Public Use
  Company Number: US-JNJFOC-20100702226

PATIENT
  Sex: Female

DRUGS (7)
  1. LEVAQUIN [Suspect]
     Indication: SINUSITIS
     Route: 048
  2. LEVAQUIN [Suspect]
     Indication: PNEUMONIA
     Route: 048
  3. FLUOROQUINOLONES [Suspect]
     Indication: PRODUCT USED FOR UNKNOWN INDICATION
     Route: 065
  4. STEROIDS NOS [Suspect]
     Indication: PRODUCT USED FOR UNKNOWN INDICATION
     Route: 065
  5. ASTELIN [Concomitant]
     Route: 065
  6. DECONGESTANTS NOS [Concomitant]
     Route: 065
  7. ANTIBIOTICS, NOS [Concomitant]
     Route: 065

REACTIONS (2)
  - OSTEOARTHRITIS [None]
  - ROTATOR CUFF SYNDROME [None]
